FAERS Safety Report 6073218-2 (Version None)
Quarter: 2009Q1

REPORT INFORMATION
  Report Type: 
  Country: None (occurrence: None)
  Receive Date: 20090211
  Receipt Date: 20081124
  Transmission Date: 20090719
  Serious: No
  Sender: FDA-Public Use
  Company Number: A0753177A

PATIENT
  Age: 84 Year
  Sex: Female

DRUGS (8)
  1. ALTABAX [Suspect]
     Indication: LASER THERAPY
     Dosage: 1APP PER DAY
     Route: 061
     Dates: start: 20081016, end: 20081016
  2. ALDARA [Suspect]
     Indication: DRUG USE FOR UNKNOWN INDICATION
  3. NEXIUM [Concomitant]
  4. AMITRIPTYLINE HCL [Concomitant]
  5. LIPITOR [Concomitant]
  6. EVISTA [Concomitant]
  7. EYE DROP [Concomitant]
  8. SPIRIVA [Concomitant]

REACTIONS (4)
  - APPLICATION SITE IRRITATION [None]
  - APPLICATION SITE PAIN [None]
  - PAIN [None]
  - PARAESTHESIA [None]
